FAERS Safety Report 9251547 (Version 1)
Quarter: 2013Q1

REPORT INFORMATION
  Report Type: Spontaneous
  Country: US (occurrence: None)
  Receive Date: 20130305
  Receipt Date: 20130305
  Transmission Date: 20140127
  Serious: Yes (Other)
  Sender: FDA-Public Use
  Company Number: 163-21880-12092670

PATIENT
  Age: 88 Year
  Sex: Female
  Weight: 68.04 kg

DRUGS (18)
  1. REVLIMID [Suspect]
     Indication: MYELODYSPLASTIC SYNDROME
     Dosage: 5 MG, 1 IN 2 D, PO
     Route: 048
     Dates: start: 20120831
  2. ALTACE (RAMIPRIL) [Concomitant]
  3. ACETAMINOPHEN (PARACETAMOL) [Concomitant]
  4. ADVAIR (SERETIDE MITE) [Concomitant]
  5. ALBUTEROL (SALBUTAMOL) [Concomitant]
  6. CALCIUM + D (OS-CAL) [Concomitant]
  7. LANTUS (INSULIN GLARGINE) [Concomitant]
  8. OMEPRAZOLE (OMEPRAZOLE) [Concomitant]
  9. PREDNISONE (PREDNISONE) [Concomitant]
  10. SINGULAIR [Concomitant]
  11. VITAMIN D (ERCOCALCIFEROL) [Concomitant]
  12. ZOLOFT (SERTRALINE HYDROCHLORIDE) [Concomitant]
  13. FOSAMAX (ALENDRONATE SODIUM) [Concomitant]
  14. IRON SULFATE (FERROUS SULFATE) [Concomitant]
  15. GLUCOPHAGE (METFORMIN HYDROCHLORIDE) [Concomitant]
  16. SIMVASTATIN (SIMVASTATIN) [Concomitant]
  17. PROVENTIL MDI (SALBUTAMOL) [Concomitant]
  18. ACTOS (PIOGLITAZONE) [Concomitant]

REACTIONS (3)
  - Headache [None]
  - Asthenia [None]
  - Tremor [None]
